FAERS Safety Report 14104639 (Version 1)
Quarter: 2017Q4

REPORT INFORMATION
  Report Type: Spontaneous
  Country: US (occurrence: US)
  Receive Date: 20171018
  Receipt Date: 20171018
  Transmission Date: 20180321
  Serious: No
  Sender: FDA-Public Use
  Company Number: US-AMGEN-USASP2017126788

PATIENT
  Age: 82 Year
  Sex: Female

DRUGS (1)
  1. PROLIA [Suspect]
     Active Substance: DENOSUMAB
     Indication: PRODUCT USED FOR UNKNOWN INDICATION
     Dosage: UNK
     Route: 065
     Dates: start: 2012

REACTIONS (6)
  - Oesophageal disorder [Unknown]
  - Dyspnoea [Unknown]
  - Dizziness [Unknown]
  - Dry skin [Unknown]
  - Pruritus [Unknown]
  - Throat tightness [Unknown]

NARRATIVE: CASE EVENT DATE: 2015
